FAERS Safety Report 11904568 (Version 1)
Quarter: 2016Q1

REPORT INFORMATION
  Report Type: Spontaneous
  Country: US (occurrence: US)
  Receive Date: 20160108
  Receipt Date: 20160108
  Transmission Date: 20160526
  Serious: No
  Sender: FDA-Public Use
  Company Number: US-ROCHE-1641043

PATIENT
  Sex: Female

DRUGS (1)
  1. RITUXAN [Suspect]
     Active Substance: RITUXIMAB
     Indication: RHEUMATOID ARTHRITIS
     Route: 042

REACTIONS (7)
  - Body temperature decreased [Unknown]
  - Renal pain [Unknown]
  - Blood urine present [Unknown]
  - Pyrexia [Unknown]
  - Feeling abnormal [Unknown]
  - Lymphadenopathy [Unknown]
  - Pain [Unknown]
